FAERS Safety Report 12155210 (Version 1)
Quarter: 2016Q1

REPORT INFORMATION
  Report Type: Spontaneous
  Country: GB (occurrence: GB)
  Receive Date: 20160307
  Receipt Date: 20160307
  Transmission Date: 20160526
  Serious: Yes (Hospitalization)
  Sender: FDA-Public Use
  Company Number: GB-TEVA-640007ACC

PATIENT
  Age: 69 Year
  Sex: Female
  Weight: 65.1 kg

DRUGS (5)
  1. SALBUTAMOL [Concomitant]
     Active Substance: ALBUTEROL
     Indication: ASTHMA
     Route: 055
  2. BECLOMETASONE [Concomitant]
     Active Substance: BECLOMETHASONE DIPROPIONATE
     Indication: ASTHMA
     Route: 055
  3. METRONIDAZOLE. [Suspect]
     Active Substance: METRONIDAZOLE
     Indication: TOOTH INFECTION
     Dosage: THREE TIMES A DAY- STOPPED AFTER SECOND DOSE.
     Route: 048
     Dates: start: 20160210, end: 20160210
  4. COCODAMOL [Concomitant]
     Active Substance: ACETAMINOPHEN\CODEINE PHOSPHATE
     Dosage: 2DF=500PARACETAMOL+30CODEINE PHOSPHATE
     Route: 048
  5. QUININE SULPHATE [Concomitant]
     Active Substance: QUININE SULFATE
     Route: 048

REACTIONS (4)
  - Lip swelling [Recovering/Resolving]
  - Chest pain [Recovering/Resolving]
  - Pharyngeal hypoaesthesia [Recovering/Resolving]
  - Hypoaesthesia oral [Recovering/Resolving]

NARRATIVE: CASE EVENT DATE: 20160210
